FAERS Safety Report 7883214-8 (Version None)
Quarter: 2011Q4

REPORT INFORMATION
  Report Type: 
  Country: None (occurrence: None)
  Receive Date: 20111101
  Receipt Date: 20111101
  Transmission Date: 20120403
  Serious: Yes (Other)
  Sender: FDA-Public Use
  Company Number: None

PATIENT
  Age: 44 Year
  Sex: Male

DRUGS (1)
  1. LIORESAL [Suspect]
     Indication: MUSCLE SPASTICITY
     Dosage: 12.3 MCG, DAILY, INTRATHECAL
     Route: 037

REACTIONS (5)
  - DYSKINESIA [None]
  - WITHDRAWAL SYNDROME [None]
  - DEVICE BATTERY ISSUE [None]
  - MUSCLE SPASTICITY [None]
  - INFECTION [None]
